FAERS Safety Report 5930713-1 (Version None)
Quarter: 2008Q4

REPORT INFORMATION
  Report Type: 
  Country: None (occurrence: None)
  Receive Date: 20081021
  Receipt Date: 20081008
  Transmission Date: 20090506
  Serious: Yes (Death, Hospitalization, Other)
  Sender: FDA-Public Use
  Company Number: 2008-03691

PATIENT
  Age: 77 Year
  Sex: Male
  Weight: 64 kg

DRUGS (10)
  1. VELCADE [Suspect]
     Indication: MULTIPLE MYELOMA
     Dosage: 2.3 MG, INTRAVENOUS
     Route: 042
     Dates: start: 20080721, end: 20080728
  2. HYDROCHLOROTHIAZIDE [Concomitant]
  3. ASCAL (ACETYLSALICYLATE CALCIUM) [Concomitant]
  4. MESALAMINE [Concomitant]
  5. NEXIUM [Concomitant]
  6. OSTAC (CLODRONATE DISODIUM) [Concomitant]
  7. PAROXETINE HCL [Concomitant]
  8. ZOFRAN [Concomitant]
  9. VALACYCLOVIR HCL [Concomitant]
  10. DEXAMETHASONE 0.5MG TAB [Concomitant]

REACTIONS (8)
  - CARDIAC FAILURE [None]
  - CAROTID ARTERY OCCLUSION [None]
  - CAROTID ARTERY STENOSIS [None]
  - HYPERGLYCAEMIA [None]
  - HYPOKALAEMIA [None]
  - HYPONATRAEMIA [None]
  - ISCHAEMIC CEREBRAL INFARCTION [None]
  - PNEUMONIA [None]
